FAERS Safety Report 8605422-0 (Version None)
Quarter: 2012Q3

REPORT INFORMATION
  Report Type: 
  Country: None (occurrence: None)
  Receive Date: 20120820
  Receipt Date: 20120808
  Transmission Date: 20120928
  Serious: Yes (Hospitalization, Disabling)
  Sender: FDA-Public Use
  Company Number: DE-JNJFOC-20120809237

PATIENT
  Age: 63 Year
  Sex: Female
  Weight: 52 kg

DRUGS (7)
  1. ASPIRIN [Concomitant]
     Route: 048
  2. DIPYRONE TAB [Concomitant]
     Indication: JOINT PROSTHESIS USER
     Dates: start: 20120203, end: 20120301
  3. XARELTO [Suspect]
     Indication: THROMBOSIS PROPHYLAXIS
     Route: 048
     Dates: start: 20120202, end: 20120310
  4. XARELTO [Suspect]
     Indication: HIP ARTHROPLASTY
     Route: 048
     Dates: start: 20120202, end: 20120310
  5. FLUOXETINE HCL [Concomitant]
     Indication: ANXIETY DISORDER
     Route: 048
  6. XARELTO [Suspect]
     Indication: JOINT PROSTHESIS USER
     Route: 048
     Dates: start: 20120202, end: 20120310
  7. VOLTAREN [Concomitant]
     Indication: JOINT PROSTHESIS USER
     Route: 048
     Dates: start: 20120203, end: 20120310

REACTIONS (2)
  - OPTIC ISCHAEMIC NEUROPATHY [None]
  - OPTIC ATROPHY [None]
